FAERS Safety Report 8275312 (Version 5)
Quarter: 2012Q4

REPORT INFORMATION
  Report Type: 
  Country: US (occurrence: US)
  Receive Date: 20111205
  Receipt Date: 20121011
  Transmission Date: 20130627
  Serious: Yes (Life-Threatening, Hospitalization)
  Sender: FDA-Public Use
  Company Number: PHEH2011US010739

PATIENT
  Age: 39 None
  Sex: Female

DRUGS (3)
  1. GILENYA [Suspect]
     Indication: MULTIPLE SCLEROSIS
     Dosage: 0.5 mg, Daily
     Route: 048
     Dates: start: 20110201
  2. ZYPREXA [Concomitant]
     Indication: BIPOLAR DISORDER
     Dosage: 10 mg, Daily
  3. CELEXA [Concomitant]

REACTIONS (3)
  - Suicide attempt [Recovered/Resolved]
  - Bipolar disorder [Unknown]
  - Condition aggravated [Unknown]
